FAERS Safety Report 10474421 (Version 2)
Quarter: 2014Q3

REPORT INFORMATION
  Report Type: Spontaneous
  Country: US (occurrence: US)
  Receive Date: 20140924
  Receipt Date: 20140926
  Transmission Date: 20150326
  Serious: Yes (Other)
  Sender: FDA-Public Use
  Company Number: US-ABBVIE-14P-163-1286463-00

PATIENT
  Age: 32 Year
  Sex: Female
  Weight: 76.27 kg

DRUGS (1)
  1. LUPRON DEPOT [Suspect]
     Active Substance: LEUPROLIDE ACETATE
     Indication: ENDOMETRIOSIS
     Route: 030

REACTIONS (10)
  - Vomiting [Unknown]
  - Hypothyroidism [Not Recovered/Not Resolved]
  - Endometriosis [Recovered/Resolved]
  - Asthma [Not Recovered/Not Resolved]
  - Endometriosis [Recovered/Resolved]
  - Decreased appetite [Unknown]
  - Nausea [Unknown]
  - Abdominal adhesions [Recovered/Resolved]
  - Hot flush [Recovered/Resolved]
  - Weight decreased [Unknown]

NARRATIVE: CASE EVENT DATE: 201403
